FAERS Safety Report 5197240-3 (Version None)
Quarter: 2006Q4

REPORT INFORMATION
  Report Type: 
  Country: None (occurrence: None)
  Receive Date: 20061228
  Receipt Date: 20061212
  Transmission Date: 20070319
  Serious: Yes (Death, Hospitalization)
  Sender: FDA-Public Use
  Company Number: GXKR2006PL08161

PATIENT
  Age: 57 Year
  Sex: Male

DRUGS (3)
  1. METOPROLOL (NGX) (METOPROLOL) UNKNOWN [Suspect]
     Indication: HYPERTENSION
     Dosage: 25 MG, TID, ORAL
     Route: 048
  2. INDAPAMIDE [Concomitant]
  3. ENALAPRIL MALEATE [Concomitant]

REACTIONS (19)
  - AGITATION [None]
  - ANGIOPATHY [None]
  - ANXIETY [None]
  - AORTIC DISSECTION [None]
  - BLOOD PRESSURE INCREASED [None]
  - CARDIAC TAMPONADE [None]
  - CONDITION AGGRAVATED [None]
  - DYSPHONIA [None]
  - ERYTHEMA [None]
  - FEELING HOT [None]
  - FLUSHING [None]
  - HEADACHE [None]
  - JUGULAR VEIN DISTENSION [None]
  - OCULAR HYPERAEMIA [None]
  - PERICARDITIS ADHESIVE [None]
  - RASH [None]
  - SUDDEN DEATH [None]
  - SUPERIOR VENA CAVAL OCCLUSION [None]
  - THERAPY NON-RESPONDER [None]
